FAERS Safety Report 7027162-4 (Version None)
Quarter: 2010Q3

REPORT INFORMATION
  Report Type: 
  Country: None (occurrence: None)
  Receive Date: 20100929
  Receipt Date: 20100914
  Transmission Date: 20110219
  Serious: Yes (Hospitalization)
  Sender: FDA-Public Use
  Company Number: DSJ-2010-16659

PATIENT
  Age: 64 Year
  Sex: Female

DRUGS (6)
  1. BENICAR HCT [Suspect]
     Indication: HYPERTENSION
     Dosage: 40/12.5 MG (1 IN 1 D), PER ORAL
     Route: 048
     Dates: start: 20090501
  2. METOPROLOL SUCCINATE [Concomitant]
  3. METFORMIN HCL [Concomitant]
  4. GLIMEPIRIDE (GLIMEPIRIDE) (GLIMEPIRIDE) [Concomitant]
  5. TIBOLONE (TIBOLONE) (TIBOLONE) [Concomitant]
  6. CUMARIN/TROXERUTIN [Concomitant]

REACTIONS (4)
  - ARRHYTHMIA [None]
  - CATARACT OPERATION [None]
  - CONDITION AGGRAVATED [None]
  - SELF-MEDICATION [None]
